FAERS Safety Report 17014791 (Version 1)
Quarter: 2019Q4

REPORT INFORMATION
  Report Type: Report from Study
  Country: US (occurrence: US)
  Receive Date: 20191111
  Receipt Date: 20191111
  Transmission Date: 20200122
  Serious: Yes (Other)
  Sender: FDA-Public Use
  Company Number: US-ROCHE-2457162

PATIENT
  Sex: Male

DRUGS (1)
  1. ALECENSA [Suspect]
     Active Substance: ALECTINIB HYDROCHLORIDE
     Indication: CARDIAC DISORDER
     Dosage: TAKE 4 CAPSULE(S) BY MOUTH EVERY MORNING EVERY NIG
     Route: 048

REACTIONS (1)
  - Cardiac failure congestive [Unknown]
